FAERS Safety Report 21348941 (Version 1)
Quarter: 2022Q3

REPORT INFORMATION
  Report Type: Spontaneous
  Country: US (occurrence: None)
  Receive Date: 20220919
  Receipt Date: 20220919
  Transmission Date: 20221027
  Serious: Yes (Other)
  Sender: FDA-Public Use
  Company Number: US-ROCHE-3175936

PATIENT
  Sex: Female
  Weight: 63.560 kg

DRUGS (2)
  1. OCREVUS [Suspect]
     Active Substance: OCRELIZUMAB
     Indication: Relapsing-remitting multiple sclerosis
     Dosage: OCREVUS IV INFUSION
     Route: 041
  2. CHOLESTEROL MEDICATION (UNK INGREDIENTS) [Concomitant]

REACTIONS (8)
  - Meniscus operation [Recovered/Resolved]
  - Haemoglobin decreased [Recovered/Resolved]
  - Blood iron decreased [Recovered/Resolved]
  - Haemorrhage [Not Recovered/Not Resolved]
  - Gait disturbance [Not Recovered/Not Resolved]
  - Asthenia [Not Recovered/Not Resolved]
  - Vertigo [Not Recovered/Not Resolved]
  - Small intestine ulcer [Not Recovered/Not Resolved]

NARRATIVE: CASE EVENT DATE: 20160101
